FAERS Safety Report 21851259 (Version 1)
Quarter: 2023Q1

REPORT INFORMATION
  Report Type: Spontaneous
  Country: US (occurrence: US)
  Receive Date: 20230112
  Receipt Date: 20230112
  Transmission Date: 20230417
  Serious: Yes (Other)
  Sender: FDA-Public Use
  Company Number: US-CELLTRION INC.-2023US000219

PATIENT

DRUGS (2)
  1. TRUXIMA [Suspect]
     Active Substance: RITUXIMAB-ABBS
     Indication: Immunology test abnormal
     Dosage: 1000 MILLIGRAM
     Dates: start: 20221226
  2. TRUXIMA [Suspect]
     Active Substance: RITUXIMAB-ABBS
     Indication: Neuromyelitis optica spectrum disorder

REACTIONS (3)
  - Neuromyelitis optica spectrum disorder [Unknown]
  - Immunology test abnormal [Unknown]
  - Off label use [Unknown]
